FAERS Safety Report 6812634-5 (Version None)
Quarter: 2010Q3

REPORT INFORMATION
  Report Type: 
  Country: None (occurrence: None)
  Receive Date: 20100701
  Receipt Date: 20100628
  Transmission Date: 20110219
  Serious: Yes (Death, Hospitalization)
  Sender: FDA-Public Use
  Company Number: US-ROCHE-576439

PATIENT
  Sex: Male
  Weight: 70.8 kg

DRUGS (33)
  1. TOCILIZUMAB [Suspect]
     Indication: RHEUMATOID ARTHRITIS
     Dosage: DOSE FORM REPORTED AS 20 MG/ML
     Route: 042
     Dates: start: 20061027
  2. TOCILIZUMAB [Suspect]
     Dosage: FORM REPORTED AS STERILE SOLUTION, 20 MG/ML. TEMPORARILY INTERRUPTED
     Route: 042
     Dates: start: 20070924, end: 20080714
  3. TOCILIZUMAB [Suspect]
     Dosage: FORM: INFUSION,
     Route: 042
     Dates: start: 20080719
  4. TOCILIZUMAB [Suspect]
     Dosage: DOSE: 595.2MG (8MG/KG)
     Route: 042
     Dates: start: 20090505
  5. TOCILIZUMAB [Suspect]
     Dosage: DOSE: 564MG (8MG/KG)
     Route: 042
     Dates: start: 20090602
  6. TOCILIZUMAB [Suspect]
     Dosage: DOSE: 297.2MG
     Route: 042
     Dates: start: 20090630, end: 20090717
  7. TOCILIZUMAB [Suspect]
     Dosage: FORM: PARENTERAL DOSE: 288MG (4MG/KG)
     Route: 042
     Dates: start: 20090803, end: 20090827
  8. PLACEBO [Suspect]
     Indication: RHEUMATOID ARTHRITIS
     Dosage: COMPLETED DOUBLE BLIND CORE STUDY WA18063 AND RECEIVED PLACEBO.
     Route: 065
  9. ASPIRIN [Suspect]
     Indication: PRODUCT USED FOR UNKNOWN INDICATION
     Route: 065
     Dates: start: 20070707
  10. PREDNISOLONE [Suspect]
     Indication: PRODUCT USED FOR UNKNOWN INDICATION
     Route: 065
     Dates: start: 20080601
  11. PREDNISOLONE [Suspect]
     Dosage: DRUG NAME REPORTED: PREDNISOLONE.
     Route: 065
     Dates: start: 20081114, end: 20090617
  12. METHOTREXATE [Suspect]
     Indication: PRODUCT USED FOR UNKNOWN INDICATION
     Dosage: FREQUENCY: WEEKLY
     Route: 058
     Dates: start: 20080423
  13. METHOTREXATE [Suspect]
     Route: 058
     Dates: start: 20080827, end: 20090717
  14. METHOTREXATE [Suspect]
     Route: 058
     Dates: end: 20090824
  15. MAGNESIUM CITRATE [Concomitant]
     Dates: start: 20080417
  16. ACYCLOVIR [Concomitant]
     Dates: start: 20080506
  17. HYDROCODONE [Concomitant]
     Dosage: DRUG NAME REPORTED AS HYDROCODONE/APAP; TDD:5/325MG
     Dates: start: 20030601
  18. FOLIC ACID [Concomitant]
     Dates: start: 20070428
  19. FOLIC ACID [Concomitant]
     Dates: start: 20070928
  20. FOLIC ACID [Concomitant]
     Dates: start: 20080928
  21. FOLIC ACID [Concomitant]
     Dates: start: 20090824
  22. FOLIC ACID [Concomitant]
     Dates: start: 20070929
  23. LISINOPRIL [Concomitant]
     Dates: start: 20071101
  24. LISINOPRIL [Concomitant]
     Dates: start: 20090606
  25. HYDROCHLOROTHIAZIDE [Concomitant]
     Dosage: PREVIOUSLY TDD REPORTED: 12.5 MG
     Dates: start: 20071101
  26. HYDROCHLOROTHIAZIDE [Concomitant]
     Dates: start: 20090717
  27. CARVEDILOL [Concomitant]
     Dates: start: 20071120
  28. MYLANTA [Concomitant]
     Dosage: DRUG NAME REPORTED: MYLANTE
     Dates: start: 20080722
  29. BENADRYL [Concomitant]
     Dates: start: 20070313
  30. MAALOX [Concomitant]
     Dates: start: 20080722
  31. PROTONIX [Concomitant]
     Dates: start: 20090717
  32. KLONOPIN [Concomitant]
     Dates: start: 20090717
  33. VITAMINE D [Concomitant]
     Dosage: UNITS
     Dates: start: 20090211

REACTIONS (4)
  - BILIARY SEPSIS [None]
  - DUODENAL ULCER HAEMORRHAGE [None]
  - GASTROINTESTINAL HAEMORRHAGE [None]
  - RENAL FAILURE ACUTE [None]
